FAERS Safety Report 6238654-X (Version None)
Quarter: 2009Q2

REPORT INFORMATION
  Report Type: 
  Country: None (occurrence: None)
  Receive Date: 20090617
  Receipt Date: 20080319
  Transmission Date: 20091009
  Serious: No
  Sender: FDA-Public Use
  Company Number: 273553

PATIENT
  Age: 52 Year
  Sex: Female
  Weight: 127 kg

DRUGS (4)
  1. LEVEMIR [Suspect]
     Indication: INSULIN-REQUIRING TYPE 2 DIABETES MELLITUS
     Dosage: 30 U, BID, SUBCUTANEOUS
     Route: 058
     Dates: start: 20080121, end: 20080322
  2. NOVOLOG FLEXPEN (INSULIIN ASPART) [Concomitant]
  3. BYETTA (EXENATIDE, EXENATIDE) [Concomitant]
  4. COUMADIN [Concomitant]

REACTIONS (1)
  - COAGULATION TIME SHORTENED [None]
